FAERS Safety Report 16764512 (Version 2)
Quarter: 2019Q4

REPORT INFORMATION
  Report Type: Report from Study
  Country: JP (occurrence: JP)
  Receive Date: 20190902
  Receipt Date: 20191031
  Transmission Date: 20200122
  Serious: Yes (Hospitalization, Other)
  Sender: FDA-Public Use
  Company Number: JP-BRISTOL-MYERS SQUIBB COMPANY-BMS-2018-062713

PATIENT
  Age: 65 Year
  Sex: Male
  Weight: 58 kg

DRUGS (49)
  1. LANSOPRAZOLE. [Concomitant]
     Active Substance: LANSOPRAZOLE
     Indication: PROPHYLAXIS AGAINST GASTROINTESTINAL ULCER
     Dosage: 15 MG, QD
     Route: 048
     Dates: start: 2014
  2. CARVEDILOL. [Concomitant]
     Active Substance: CARVEDILOL
     Indication: HYPERTENSION
     Dosage: 5 MG, EVERYDAY
     Route: 048
     Dates: start: 2014
  3. MAGMITT [Concomitant]
     Active Substance: MAGNESIUM OXIDE
     Indication: CONSTIPATION
     Dosage: 330 MG PER DOSE, PRN
     Route: 048
     Dates: start: 20180525
  4. BLINDED NIVOLUMAB [Suspect]
     Active Substance: NIVOLUMAB
     Indication: PRODUCT USED FOR UNKNOWN INDICATION
     Dosage: 360MG/BODY OR PLACEBO, Q3W
     Route: 041
     Dates: start: 20181203, end: 20181203
  5. BEVACIZUMAB. [Suspect]
     Active Substance: BEVACIZUMAB
     Indication: LUNG ADENOCARCINOMA
     Dosage: 912 MG, Q3WK
     Route: 041
     Dates: start: 20180525
  6. ROSUVASTATIN                       /01588602/ [Concomitant]
     Active Substance: ROSUVASTATIN CALCIUM
     Indication: HYPERCHOLESTEROLAEMIA
     Dosage: 5 MG, QD
     Route: 048
     Dates: start: 20180616
  7. LYRICA [Concomitant]
     Active Substance: PREGABALIN
     Indication: CANCER PAIN
     Dosage: 75 MG, BID
     Route: 048
     Dates: start: 2018
  8. MOSAPRIDE CITRATE [Concomitant]
     Active Substance: MOSAPRIDE CITRATE
     Indication: CONSTIPATION
     Dosage: 5 MG, TID
     Route: 048
     Dates: start: 20180515
  9. FAMOTIDINE. [Concomitant]
     Active Substance: FAMOTIDINE
     Indication: PROPHYLAXIS AGAINST GASTROINTESTINAL ULCER
     Dosage: 20 MG, EVERYDAY
     Route: 048
     Dates: start: 20180727
  10. LYRICA [Concomitant]
     Active Substance: PREGABALIN
     Indication: CANCER PAIN
     Dosage: 75 MG, Q12H
     Route: 048
     Dates: start: 2018
  11. URIADEC [Concomitant]
     Active Substance: TOPIROXOSTAT
     Indication: HYPERURICAEMIA
     Dosage: 40 MG, Q12H
     Route: 048
     Dates: start: 20181203
  12. AMITIZA [Concomitant]
     Active Substance: LUBIPROSTONE
     Indication: CONSTIPATION
     Dosage: 24 ?G, PRN
     Route: 048
     Dates: start: 20180424
  13. MAGNESIUM OXIDE. [Concomitant]
     Active Substance: MAGNESIUM OXIDE
     Indication: HYPOMAGNESAEMIA
     Dosage: 80 MG, EVERYDAY
     Route: 048
     Dates: start: 20180928
  14. BLINDED NIVOLUMAB [Suspect]
     Active Substance: NIVOLUMAB
     Indication: NON-SMALL CELL LUNG CANCER
     Dosage: 360 MG, UNK
     Route: 065
     Dates: start: 20180525
  15. PACLITAXEL. [Suspect]
     Active Substance: PACLITAXEL
     Indication: NON-SMALL CELL LUNG CANCER
     Dosage: 337.4 MG, UNK
     Route: 041
     Dates: start: 20180525
  16. CARBOPLATIN. [Suspect]
     Active Substance: CARBOPLATIN
     Indication: NON-SMALL CELL LUNG CANCER
     Dosage: 475.8 MG, UNK
     Route: 042
     Dates: start: 20180525
  17. NICORANDIL [Concomitant]
     Active Substance: NICORANDIL
     Indication: ANGINA PECTORIS
     Dosage: 5 MG, Q12H
     Route: 048
     Dates: start: 2014
  18. SMILE 40 EX [Concomitant]
     Active Substance: CHLORPHENIRAMINE\NEOSTIGMINE METILSULFATE\POTASSIUM\TETRAHYDROZOLINE\VITAMINS
     Indication: ASTHENOPIA
     Dosage: APPROPRIATE DOSAGE, PRN
     Route: 047
     Dates: start: 2008
  19. ROSUVASTATIN. [Concomitant]
     Active Substance: ROSUVASTATIN
     Indication: HYPERCHOLESTEROLAEMIA
     Dosage: 5 MG, EVERYDAY
     Route: 048
     Dates: start: 20180616
  20. BLINDED PLACEBO [Suspect]
     Active Substance: INVESTIGATIONAL PRODUCT
     Indication: LUNG ADENOCARCINOMA
     Dosage: 360MG/BODY OR PLACEBO, Q3W
     Route: 041
     Dates: start: 20180525, end: 20180816
  21. BLINDED PLACEBO [Suspect]
     Active Substance: INVESTIGATIONAL PRODUCT
     Indication: PRODUCT USED FOR UNKNOWN INDICATION
     Dosage: 360MG/BODY OR PLACEBO, Q3W
     Route: 041
     Dates: start: 20181203, end: 20181203
  22. BIO-THREE [Concomitant]
     Active Substance: HERBALS
     Indication: GASTROINTESTINAL DISORDER
     Dosage: 1 TAB, BID
     Route: 048
  23. CORTRIL [Concomitant]
     Active Substance: HYDROCORTISONE
     Indication: HYPOPHYSITIS
     Dosage: 10 MG, QD
     Route: 048
     Dates: start: 20180728
  24. BIO-THREE [Concomitant]
     Active Substance: HERBALS
     Indication: PRODUCT USED FOR UNKNOWN INDICATION
     Dosage: 1TABLET/DOSE
     Route: 048
  25. SUPROFEN [Concomitant]
     Active Substance: SUPROFEN
     Indication: ECZEMA
     Dosage: ADEQUATE DOSE AS NEEDED
     Route: 003
     Dates: start: 20181015
  26. ZYPREXA [Concomitant]
     Active Substance: OLANZAPINE
     Indication: NAUSEA
     Dosage: 2.5 MG, PRN
     Route: 048
     Dates: start: 20180616
  27. OXYCODONE                          /00045603/ [Concomitant]
     Active Substance: OXYCODONE
     Indication: CANCER PAIN
     Dosage: 20 MG, BID
     Route: 048
     Dates: start: 20180603
  28. METOCLOPRAMIDE. [Concomitant]
     Active Substance: METOCLOPRAMIDE
     Indication: NAUSEA
     Dosage: 330 MG, PRN
     Route: 048
     Dates: start: 20180526
  29. NAUZELIN [Concomitant]
     Active Substance: DOMPERIDONE
     Indication: NAUSEA
     Dosage: 30 MG, QD
     Route: 048
     Dates: start: 20180727
  30. BLINDED NIVOLUMAB [Suspect]
     Active Substance: NIVOLUMAB
     Indication: LUNG ADENOCARCINOMA
     Dosage: 360MG/BODY OR PLACEBO, Q3W
     Route: 041
     Dates: start: 20180525, end: 20180816
  31. PACLITAXEL. [Suspect]
     Active Substance: PACLITAXEL
     Indication: LUNG ADENOCARCINOMA
     Route: 065
  32. BEVACIZUMAB. [Suspect]
     Active Substance: BEVACIZUMAB
     Indication: NON-SMALL CELL LUNG CANCER
     Dosage: 982.5 MG, UNK
     Route: 042
     Dates: start: 20180525
  33. BAYASPIRIN [Concomitant]
     Active Substance: ASPIRIN
     Indication: THROMBOSIS PROPHYLAXIS
     Dosage: 100 MG, EVERYDAY
     Route: 048
     Dates: start: 2014
  34. NIFEDIPINE. [Concomitant]
     Active Substance: NIFEDIPINE
     Indication: PRODUCT USED FOR UNKNOWN INDICATION
     Dosage: 20 MG, Q12H
     Route: 048
     Dates: start: 20180928
  35. CALONAL [Concomitant]
     Active Substance: ACETAMINOPHEN
     Indication: CANCER PAIN
     Dosage: 500 MG, Q12H
     Route: 048
     Dates: start: 20180424
  36. ZYPREXA [Concomitant]
     Active Substance: OLANZAPINE
     Indication: NAUSEA
     Route: 065
  37. LEVOFLOXACIN. [Concomitant]
     Active Substance: LEVOFLOXACIN
     Indication: INFECTION PROPHYLAXIS
     Dosage: 250 MG, QD
     Route: 048
     Dates: start: 20180804
  38. BIO-THREE [Concomitant]
     Active Substance: HERBALS
     Indication: DYSBIOSIS
     Dosage: 1 DF, BID
     Route: 048
  39. DIFLUPREDNATE [Concomitant]
     Active Substance: DIFLUPREDNATE
     Indication: ECZEMA
     Dosage: ADEQUATE DOSE AS NEEDED
     Route: 003
     Dates: start: 20181208
  40. BLINDED PLACEBO [Suspect]
     Active Substance: INVESTIGATIONAL PRODUCT
     Indication: NON-SMALL CELL LUNG CANCER
     Dosage: 360 MG, UNK
     Route: 065
     Dates: start: 20180525
  41. CARBOPLATIN. [Suspect]
     Active Substance: CARBOPLATIN
     Indication: LUNG ADENOCARCINOMA
     Route: 065
  42. LANSOPRAZOLE. [Concomitant]
     Active Substance: LANSOPRAZOLE
     Indication: PROPHYLAXIS AGAINST GASTROINTESTINAL ULCER
     Dosage: 15 MG, EVERYDAY
     Route: 048
     Dates: start: 20181110
  43. NIFEDIPINE. [Concomitant]
     Active Substance: NIFEDIPINE
     Indication: HYPERTENSION
     Dosage: 20 MG, BID
     Route: 048
     Dates: start: 2014
  44. CALONAL [Concomitant]
     Active Substance: ACETAMINOPHEN
     Indication: PEMPHIGOID
     Dosage: UNK
     Route: 065
  45. OXINORM                            /00045603/ [Concomitant]
     Active Substance: OXYCODONE HYDROCHLORIDE
     Indication: CANCER PAIN
     Dosage: 5 MG, PRN
     Route: 048
     Dates: start: 20180424
  46. BIO-THREE [Concomitant]
     Active Substance: HERBALS
     Indication: PRODUCT USED FOR UNKNOWN INDICATION
     Dosage: 1TABLET/DOSE
     Route: 048
  47. BIO-THREE [Concomitant]
     Active Substance: HERBALS
     Indication: PRODUCT USED FOR UNKNOWN INDICATION
     Dosage: 1TABLET/DOSE
     Route: 048
  48. BESOFTEN [Concomitant]
     Active Substance: PENTOSAN POLYSULFATE SODIUM
     Indication: ECZEMA
     Dosage: ADEQUATE DOSE AS NEEDED
     Route: 003
     Dates: start: 20181015
  49. LIDOMEX [Concomitant]
     Active Substance: PREDNISOLONE VALERATE ACETATE
     Indication: PRURITUS
     Dosage: UNK, PRN
     Route: 003

REACTIONS (7)
  - Pemphigoid [Recovering/Resolving]
  - Colitis [Recovering/Resolving]
  - Diarrhoea [Unknown]
  - Febrile neutropenia [Recovering/Resolving]
  - Acute kidney injury [Recovered/Resolved]
  - Interstitial lung disease [Recovered/Resolved]
  - Adrenocorticotropic hormone deficiency [Recovering/Resolving]

NARRATIVE: CASE EVENT DATE: 20180629
